FAERS Safety Report 21475425 (Version 1)
Quarter: 2022Q4

REPORT INFORMATION
  Report Type: Spontaneous
  Country: HR (occurrence: HR)
  Receive Date: 20221019
  Receipt Date: 20221019
  Transmission Date: 20230113
  Serious: Yes (Hospitalization, Other)
  Sender: FDA-Public Use
  Company Number: HR-BoehringerIngelheim-2022-BI-197556

PATIENT
  Age: 73 Year
  Sex: Female

DRUGS (1)
  1. GILOTRIF [Suspect]
     Active Substance: AFATINIB
     Indication: Product used for unknown indication

REACTIONS (7)
  - Diarrhoea [Unknown]
  - Nausea [Unknown]
  - Asthenia [Not Recovered/Not Resolved]
  - Vomiting [Unknown]
  - Pruritus [Unknown]
  - Decreased appetite [Unknown]
  - Rash [Unknown]
